FAERS Safety Report 9652403 (Version 1)
Quarter: 2013Q4

REPORT INFORMATION
  Report Type: Spontaneous
  Country: US (occurrence: None)
  Receive Date: 20131028
  Receipt Date: 20131028
  Transmission Date: 20140711
  Serious: Yes (Hospitalization)
  Sender: FDA-Public Use
  Company Number: None

PATIENT
  Age: 62 Year
  Sex: Female
  Weight: 122.47 kg

DRUGS (1)
  1. LISINOPRIL 20 MG TABLET [Suspect]
     Route: 048
     Dates: start: 20131019, end: 20131021

REACTIONS (2)
  - Abdominal pain [None]
  - Inflammatory bowel disease [None]
